FAERS Safety Report 8141099-9 (Version None)
Quarter: 2012Q1

REPORT INFORMATION
  Report Type: 
  Country: None (occurrence: None)
  Receive Date: 20120216
  Receipt Date: 20120127
  Transmission Date: 20120608
  Serious: No
  Sender: FDA-Public Use
  Company Number: US-BAYER-2012-015456

PATIENT
  Age: 48 Year
  Sex: Female

DRUGS (4)
  1. VENTAVIS [Suspect]
     Indication: PULMONARY ARTERIAL HYPERTENSION
     Dosage: 10 ?G, UNK
     Dates: start: 20120116
  2. CALCIUM CHANNEL BLOCKERS [Concomitant]
  3. COUMADIN [Concomitant]
  4. ADCIRCA [Concomitant]

REACTIONS (3)
  - SKIN WARM [None]
  - PRURITUS [None]
  - RASH GENERALISED [None]
